FAERS Safety Report 18224354 (Version 2)
Quarter: 2023Q1

REPORT INFORMATION
  Report Type: Spontaneous
  Country: FR (occurrence: FR)
  Receive Date: 20200902
  Receipt Date: 20230201
  Transmission Date: 20230418
  Serious: Yes (Hospitalization, Congenital Anomaly, Other)
  Sender: FDA-Public Use
  Company Number: FR-SANOFI-2020SA175279

PATIENT
  Age: 39 Week
  Sex: Male

DRUGS (2)
  1. CLOBAZAM [Suspect]
     Active Substance: CLOBAZAM
     Indication: Epilepsy
     Dosage: 2 DF
     Route: 064
  2. VALPROATE SODIUM [Suspect]
     Active Substance: VALPROATE SODIUM
     Indication: Epilepsy
     Dosage: 1000 MG, QD
     Route: 064
     Dates: start: 20090523, end: 20100219

REACTIONS (37)
  - Pulmonary valve stenosis [Unknown]
  - Gross motor delay [Unknown]
  - Pulmonary hypoplasia [Unknown]
  - Selective eating disorder [Unknown]
  - Fallot^s tetralogy [Unknown]
  - Cryptorchism [Unknown]
  - Inguinal hernia [Unknown]
  - Hypotonia [Unknown]
  - Cardiomyopathy [Unknown]
  - Gastrooesophageal reflux disease [Unknown]
  - Congenital pyelocaliectasis [Unknown]
  - Psychomotor retardation [Unknown]
  - Congenital musculoskeletal disorder of limbs [Unknown]
  - Foetal exposure during pregnancy [Unknown]
  - Hydronephrosis [Unknown]
  - Dysmorphism [Unknown]
  - Ectrodactyly [Unknown]
  - Retrognathia [Unknown]
  - Language disorder [Unknown]
  - Cognitive disorder [Unknown]
  - Dacryostenosis congenital [Unknown]
  - Deafness bilateral [Unknown]
  - Hypermobility syndrome [Unknown]
  - Microcephaly [Unknown]
  - Visual impairment [Unknown]
  - Amblyopia [Unknown]
  - Fine motor delay [Unknown]
  - Anisometropia [Unknown]
  - IIIrd nerve disorder [Unknown]
  - Speech disorder [Unknown]
  - Psychiatric symptom [Unknown]
  - Urinary tract disorder [Unknown]
  - Strabismus [Unknown]
  - Personal relationship issue [Unknown]
  - Anxiety [Unknown]
  - Coordination abnormal [Unknown]
  - Dysgraphia [Unknown]

NARRATIVE: CASE EVENT DATE: 20100219
